FAERS Safety Report 4597126-9 (Version None)
Quarter: 2005Q1

REPORT INFORMATION
  Report Type: 
  Country: None (occurrence: None)
  Receive Date: 20050301
  Receipt Date: 20050210
  Transmission Date: 20050727
  Serious: No
  Sender: FDA-Public Use
  Company Number: A01200500728

PATIENT
  Age: 83 Year
  Sex: Male

DRUGS (4)
  1. (ALFUZOSIN) - TABLET PR - 10 MG [Suspect]
     Indication: BLADDER OBSTRUCTION
     Dosage: 10 MG OD
     Route: 048
     Dates: start: 20041021
  2. PRAVASTATIN [Concomitant]
  3. CANDESARTAN [Concomitant]
  4. ASPIRIN [Concomitant]

REACTIONS (1)
  - ANGINA PECTORIS [None]
